FAERS Safety Report 6347233-5 (Version None)
Quarter: 2009Q3

REPORT INFORMATION
  Report Type: 
  Country: None (occurrence: None)
  Receive Date: 20090910
  Receipt Date: 20090904
  Transmission Date: 20100115
  Serious: Yes (Hospitalization)
  Sender: FDA-Public Use
  Company Number: ZA-BAYER-200930838GPV

PATIENT
  Age: 64 Year
  Sex: Male

DRUGS (1)
  1. AVELON [Suspect]
     Indication: SINOBRONCHITIS
     Dosage: TOTAL DAILY DOSE: 400 MG  UNIT DOSE: 400 MG
     Route: 048
     Dates: start: 20080101, end: 20080101

REACTIONS (2)
  - DYSPNOEA [None]
  - LARYNGOSPASM [None]
